FAERS Safety Report 21345142 (Version 1)
Quarter: 2022Q3

REPORT INFORMATION
  Report Type: Spontaneous
  Country: US (occurrence: US)
  Receive Date: 20220916
  Receipt Date: 20220916
  Transmission Date: 20221026
  Serious: Yes (Death, Other)
  Sender: FDA-Public Use
  Company Number: US-GILEAD-2022-0598044

PATIENT
  Age: 51 Year
  Sex: Female

DRUGS (4)
  1. VEKLURY [Suspect]
     Active Substance: REMDESIVIR
     Indication: COVID-19
     Dosage: 5 MG, QD
     Route: 065
     Dates: start: 20210814
  2. VEKLURY [Suspect]
     Active Substance: REMDESIVIR
     Dosage: 20 MG, QD
     Route: 065
     Dates: start: 20210815
  3. VEKLURY [Suspect]
     Active Substance: REMDESIVIR
     Dosage: 5 MG, QD
     Route: 065
     Dates: start: 20210816
  4. VEKLURY [Suspect]
     Active Substance: REMDESIVIR
     Dosage: 5 MG, QD
     Route: 065
     Dates: start: 20210819

REACTIONS (1)
  - Renal failure [Fatal]
